FAERS Safety Report 13753851 (Version 1)
Quarter: 2017Q3

REPORT INFORMATION
  Report Type: Spontaneous
  Country: US (occurrence: US)
  Receive Date: 20170714
  Receipt Date: 20170714
  Transmission Date: 20171127
  Serious: Yes (Other)
  Sender: FDA-Public Use
  Company Number: None

PATIENT
  Age: 18 Year
  Sex: Female
  Weight: 74.25 kg

DRUGS (3)
  1. TYLONAL [Concomitant]
  2. NEXPLANON [Suspect]
     Active Substance: ETONOGESTREL
     Indication: CONTRACEPTION
     Dosage: ?          OTHER STRENGTH:MG;QUANTITY:1 SUBDERMAL;OTHER FREQUENCY:CONSTANTLY;?
     Route: 058
     Dates: start: 20160607, end: 20170712
  3. PHINIGRAIN [Concomitant]

REACTIONS (10)
  - Device issue [None]
  - Constipation [None]
  - Rash generalised [None]
  - Abdominal distension [None]
  - Haemorrhage [None]
  - Infection [None]
  - Drug withdrawal syndrome [None]
  - Frequent bowel movements [None]
  - Gallbladder disorder [None]
  - Eructation [None]

NARRATIVE: CASE EVENT DATE: 20160701
